FAERS Safety Report 4794965-6 (Version None)
Quarter: 2005Q4

REPORT INFORMATION
  Report Type: 
  Country: None (occurrence: None)
  Receive Date: 20051006
  Receipt Date: 20050929
  Transmission Date: 20060501
  Serious: Yes (Hospitalization)
  Sender: FDA-Public Use
  Company Number: DE-2005-011284

PATIENT
  Age: 33 Year
  Sex: Female
  Weight: 60 kg

DRUGS (1)
  1. MIRENA [Suspect]
     Indication: PROPHYLAXIS
     Dosage: 20 UG/DAY, CONT, INTRA-UTERINE
     Route: 015
     Dates: start: 20020301, end: 20050802

REACTIONS (7)
  - ABDOMINAL PAIN LOWER [None]
  - DRUG INEFFECTIVE [None]
  - HAEMATOMA [None]
  - METRORRHAGIA [None]
  - MIGRAINE [None]
  - OVARIAN CYST [None]
  - SKIN HAEMORRHAGE [None]
